FAERS Safety Report 16682201 (Version 1)
Quarter: 2019Q3

REPORT INFORMATION
  Report Type: Spontaneous
  Country: DE (occurrence: DE)
  Receive Date: 20190808
  Receipt Date: 20190808
  Transmission Date: 20191004
  Serious: Yes (Other)
  Sender: FDA-Public Use
  Company Number: DE-TEVA-2019-DE-1087882

PATIENT
  Age: 40 Year
  Sex: Female

DRUGS (2)
  1. IBUPROFEN. [Suspect]
     Active Substance: IBUPROFEN
     Indication: MIGRAINE
     Route: 065
  2. PETADOLEX [Suspect]
     Active Substance: HERBALS
     Indication: MIGRAINE
     Dosage: 150 MILLIGRAM DAILY;
     Route: 065

REACTIONS (1)
  - Hepatitis acute [Unknown]
